FAERS Safety Report 13456098 (Version 1)
Quarter: 2017Q2

REPORT INFORMATION
  Report Type: Report from Study
  Country: BR (occurrence: BR)
  Receive Date: 20170418
  Receipt Date: 20170418
  Transmission Date: 20170830
  Serious: Yes (Hospitalization, Other)
  Sender: FDA-Public Use
  Company Number: PHHY2017BR056569

PATIENT
  Sex: Female
  Weight: 110 kg

DRUGS (14)
  1. ACLASTA [Suspect]
     Active Substance: ZOLEDRONIC ACID
     Indication: OSTEOPOROSIS
     Dosage: 5 MG, Q12MO
     Route: 042
     Dates: start: 20130522
  2. PANTOPRAZOL [Concomitant]
     Active Substance: PANTOPRAZOLE SODIUM
     Indication: PROPHYLAXIS
     Dosage: 1 DF, QD (MORNING)
     Route: 065
  3. GLIFAGE [Concomitant]
     Active Substance: METFORMIN HYDROCHLORIDE
     Indication: DIABETES MELLITUS
     Dosage: 500 MG, EVERY EVENING
     Route: 048
     Dates: start: 2014
  4. CALCIUM [Concomitant]
     Active Substance: CALCIUM
     Indication: PRODUCT USED FOR UNKNOWN INDICATION
     Route: 065
  5. CITONEURIN [Concomitant]
     Active Substance: CYANOCOBALAMIN\PYRIDOXINE HYDROCHLORIDE\THIAMINE
     Indication: PAIN
     Dosage: 1 DF, QD (MORNING)
     Route: 048
  6. OSTEO BI-FLEX [Concomitant]
     Active Substance: CHONDROITIN SULFATE A\GLUCOSAMINE
     Indication: CHONDROPATHY
     Dosage: 1 DF, QD
     Route: 065
  7. VITAMIN D [Concomitant]
     Active Substance: CHOLECALCIFEROL
     Indication: CALCIUM DEFICIENCY
     Dosage: 1 DF, QD
     Route: 048
  8. LOSARTAN. [Concomitant]
     Active Substance: LOSARTAN
     Indication: BLOOD PRESSURE ABNORMAL
     Dosage: 100 MG, QD (IN THE MORNING)
     Route: 065
  9. MODURETIC 5-50 [Concomitant]
     Active Substance: AMILORIDE HYDROCHLORIDE\HYDROCHLOROTHIAZIDE
     Indication: BLOOD PRESSURE ABNORMAL
     Dosage: 1 DF, QD (MORNING)
     Route: 048
  10. OSCAL D [Concomitant]
     Active Substance: CALCIUM CARBONATE\CHOLECALCIFEROL
     Indication: CALCIUM DEFICIENCY
     Dosage: 1 DF, QD
     Route: 065
  11. JANUVIA [Concomitant]
     Active Substance: SITAGLIPTIN PHOSPHATE
     Indication: DIABETES MELLITUS
     Dosage: 1 DF, QD (MORNING)
     Route: 065
     Dates: start: 2014
  12. XARELTO [Concomitant]
     Active Substance: RIVAROXABAN
     Indication: PAIN
     Dosage: 1 DF, QD
     Route: 065
  13. FRONTAL [Concomitant]
     Active Substance: ALPRAZOLAM
     Indication: PRODUCT USED FOR UNKNOWN INDICATION
     Dosage: 0.5 MG, EVERY EVENING
     Route: 065
  14. SYNTHROID [Concomitant]
     Active Substance: LEVOTHYROXINE SODIUM
     Indication: THYROID DISORDER
     Dosage: 1 DF, QD
     Route: 065

REACTIONS (21)
  - Thrombosis [Unknown]
  - Osteopenia [Unknown]
  - Osteonecrosis [Unknown]
  - Spinal fracture [Unknown]
  - Upper limb fracture [Unknown]
  - Asthmatic crisis [Unknown]
  - Pathological fracture [Unknown]
  - Nervousness [Unknown]
  - Gait disturbance [Unknown]
  - Bronchitis [Unknown]
  - Fall [Unknown]
  - Femur fracture [Unknown]
  - Osteoporosis [Unknown]
  - Lumbar vertebral fracture [Unknown]
  - Blood calcium decreased [Unknown]
  - Blood calcium increased [Unknown]
  - Incorrect drug administration duration [Unknown]
  - Rib fracture [Unknown]
  - Foot fracture [Unknown]
  - Cervical vertebral fracture [Unknown]
  - Condition aggravated [Unknown]

NARRATIVE: CASE EVENT DATE: 2016
